FAERS Safety Report 8855687 (Version 1)
Quarter: 2012Q4

REPORT INFORMATION
  Report Type: 
  Country: US (occurrence: US)
  Receive Date: 20121023
  Receipt Date: 20121023
  Transmission Date: 20130627
  Serious: No
  Sender: FDA-Public Use
  Company Number: US-AMGEN-USASP2012059057

PATIENT
  Age: 40 Year
  Sex: Male
  Weight: 90.7 kg

DRUGS (5)
  1. ENBREL [Suspect]
     Indication: PSORIASIS
     Dosage: 50 mg, 2 times/wk
     Route: 058
  2. LOTREL [Concomitant]
     Dosage: 10-20 mg
  3. CARVEDILOL [Concomitant]
     Dosage: 6.25 mg, UNK
  4. LUNESTA [Concomitant]
     Dosage: 1 mg, UNK
  5. IBUPROFEN [Concomitant]
     Dosage: 200 mg, UNK

REACTIONS (2)
  - Dizziness [Recovered/Resolved]
  - Injection site pain [Recovered/Resolved]
